FAERS Safety Report 19386169 (Version 1)
Quarter: 2021Q2

REPORT INFORMATION
  Report Type: Spontaneous
  Country: FR (occurrence: FR)
  Receive Date: 20210607
  Receipt Date: 20210607
  Transmission Date: 20210717
  Serious: Yes (Other)
  Sender: FDA-Public Use
  Company Number: FR-009507513-2105FRA007456

PATIENT
  Age: 4 Year
  Weight: 90 kg

DRUGS (8)
  1. TEMOZOLOMIDE. [Suspect]
     Active Substance: TEMOZOLOMIDE
     Dosage: UNK (3RD CURE)
     Dates: start: 20210310
  2. TOPOTECAN HYDROCHLORIDE. [Suspect]
     Active Substance: TOPOTECAN HYDROCHLORIDE
     Dosage: UNK (4TH CURE)
     Dates: start: 20210407
  3. TEMOZOLOMIDE. [Suspect]
     Active Substance: TEMOZOLOMIDE
     Dosage: UNK (2ND CURE)
     Dates: start: 20210210
  4. TOPOTECAN HYDROCHLORIDE. [Suspect]
     Active Substance: TOPOTECAN HYDROCHLORIDE
     Dosage: UNK (3RD CURE)
     Dates: start: 20210310
  5. TEMOZOLOMIDE. [Suspect]
     Active Substance: TEMOZOLOMIDE
     Dosage: UNK (4TH CURE)
     Dates: start: 20210407
  6. TOPOTECAN HYDROCHLORIDE. [Suspect]
     Active Substance: TOPOTECAN HYDROCHLORIDE
     Dosage: UNK (2ND CURE)
     Dates: start: 20210210
  7. TEMOZOLOMIDE. [Suspect]
     Active Substance: TEMOZOLOMIDE
     Dosage: UNK (1ST CURE)
     Dates: start: 20210108
  8. TOPOTECAN HYDROCHLORIDE. [Suspect]
     Active Substance: TOPOTECAN HYDROCHLORIDE
     Dosage: UNK (1ST CURE)
     Dates: start: 20210108

REACTIONS (7)
  - Clostridium colitis [Unknown]
  - Spinal cord infection [Unknown]
  - Neoplasm progression [Unknown]
  - Colitis [Unknown]
  - Staphylococcal sepsis [Unknown]
  - Pyrexia [Unknown]
  - Septic shock [Unknown]

NARRATIVE: CASE EVENT DATE: 2021
